FAERS Safety Report 8177963-4 (Version None)
Quarter: 2012Q1

REPORT INFORMATION
  Report Type: 
  Country: None (occurrence: None)
  Receive Date: 20120301
  Receipt Date: 20120215
  Transmission Date: 20120608
  Serious: Yes (Other)
  Sender: FDA-Public Use
  Company Number: US-PFIZER INC-2012049901

PATIENT
  Age: 75 Year
  Sex: Female

DRUGS (3)
  1. HYDROXYZINE PAMOATE [Suspect]
  2. AMITRIPTYLINE HCL [Suspect]
  3. CLONIDINE [Suspect]

REACTIONS (1)
  - CHARLES BONNET SYNDROME [None]
